FAERS Safety Report 10668395 (Version 1)
Quarter: 2014Q4

REPORT INFORMATION
  Report Type: Spontaneous
  Country: SI (occurrence: SI)
  Receive Date: 20141222
  Receipt Date: 20141222
  Transmission Date: 20150529
  Serious: Yes (Hospitalization)
  Sender: FDA-Public Use
  Company Number: SI-TEVA-530053ISR

PATIENT
  Age: 77 Year
  Sex: Male

DRUGS (2)
  1. ALIMTA [Suspect]
     Active Substance: PEMETREXED DISODIUM
     Indication: CHEMOTHERAPY
     Dosage: 500 MG/M2, CONCENTRATE FOR SOLUTION FOR INFUSION
     Route: 042
     Dates: start: 20140807, end: 20140918
  2. CARBOPLATIN PLIVA 10MG/ML [Suspect]
     Active Substance: CARBOPLATIN
     Indication: CHEMOTHERAPY
     Dosage: 410 MILLIGRAM DAILY; AUC 4, CONCENTRATE FOR SOLUTION FOR INFUSION
     Route: 042
     Dates: start: 20140807, end: 20140918

REACTIONS (1)
  - Acute myocardial infarction [Unknown]

NARRATIVE: CASE EVENT DATE: 20141017
